FAERS Safety Report 23660360 (Version 3)
Quarter: 2024Q2

REPORT INFORMATION
  Report Type: Other
  Country: XI (occurrence: None)
  Receive Date: 20240321
  Receipt Date: 20240429
  Transmission Date: 20240716
  Serious: Yes (Other)
  Sender: FDA-Public Use
  Company Number: GB-ROCHE-2787989

PATIENT
  Age: 67 Year
  Sex: Female

DRUGS (3)
  1. TOCILIZUMAB [Suspect]
     Active Substance: TOCILIZUMAB
     Indication: Rheumatoid arthritis
     Route: 058
     Dates: start: 201907
  2. TOCILIZUMAB [Suspect]
     Active Substance: TOCILIZUMAB
     Route: 058
     Dates: start: 201307
  3. TOCILIZUMAB [Suspect]
     Active Substance: TOCILIZUMAB
     Route: 058
     Dates: start: 2011

REACTIONS (4)
  - White blood cell count decreased [Unknown]
  - Inappropriate schedule of product administration [Unknown]
  - White blood cell count decreased [Not Recovered/Not Resolved]
  - Ill-defined disorder [Unknown]

NARRATIVE: CASE EVENT DATE: 20130607
